FAERS Safety Report 5723030-6 (Version None)
Quarter: 2008Q2

REPORT INFORMATION
  Report Type: 
  Country: None (occurrence: None)
  Receive Date: 20080428
  Receipt Date: 20080428
  Transmission Date: 20081010
  Serious: Yes (Other)
  Sender: FDA-Public Use
  Company Number: None

PATIENT
  Age: 59 Year
  Sex: Male

DRUGS (1)
  1. TIMOLOL GFS GEL SOLN 5ML - 0.5% [Suspect]
     Indication: GLAUCOMA
     Dosage: INSTILL 1 DROP IN RIGHT EYE AT BEDTIME
     Dates: start: 20071201

REACTIONS (4)
  - MUCOSAL DISCOLOURATION [None]
  - NO REACTION ON PREVIOUS EXPOSURE TO DRUG [None]
  - OCULAR HYPERAEMIA [None]
  - PHARMACEUTICAL PRODUCT COMPLAINT [None]
